FAERS Safety Report 19118795 (Version 4)
Quarter: 2021Q3

REPORT INFORMATION
  Report Type: Spontaneous
  Country: US (occurrence: US)
  Receive Date: 20210409
  Receipt Date: 20210721
  Transmission Date: 20211014
  Serious: Yes (Death, Hospitalization)
  Sender: FDA-Public Use
  Company Number: US-VIFOR (INTERNATIONAL) INC.-VIT-2021-03003

PATIENT
  Age: 69 Year
  Sex: Female

DRUGS (3)
  1. VELTASSA [Suspect]
     Active Substance: PATIROMER
     Indication: HYPERKALAEMIA
     Route: 048
     Dates: start: 20190326
  2. VELTASSA [Suspect]
     Active Substance: PATIROMER
     Route: 048
     Dates: end: 202104
  3. VELTASSA [Suspect]
     Active Substance: PATIROMER
     Route: 048

REACTIONS (3)
  - Death [Fatal]
  - Blood potassium increased [Unknown]
  - Fall [Unknown]

NARRATIVE: CASE EVENT DATE: 202104
